FAERS Safety Report 7221399-7 (Version None)
Quarter: 2010Q4

REPORT INFORMATION
  Report Type: 
  Country: None (occurrence: None)
  Receive Date: 20101227
  Receipt Date: 20101217
  Transmission Date: 20110411
  Serious: Yes (Death, Life-Threatening, Hospitalization, Disabling)
  Sender: FDA-Public Use
  Company Number: WAES 1011USA00085

PATIENT
  Age: 4 Year
  Sex: Male
  Weight: 18.1439 kg

DRUGS (2)
  1. CAP VORINOSTAT UNK [Suspect]
     Indication: NEUROBLASTOMA
     Dosage: 130 MG/DAILY/PO
     Route: 048
     Dates: start: 20100330, end: 20100412
  2. IOBENGUANE I 131 UNK [Suspect]
     Indication: NEUROBLASTOMA
     Dosage: 1X/IV
     Route: 042
     Dates: start: 20100401, end: 20100401

REACTIONS (4)
  - ACUTE MYELOID LEUKAEMIA [None]
  - MALIGNANT NEOPLASM PROGRESSION [None]
  - NEUROBLASTOMA [None]
  - THROMBOCYTOPENIA [None]
